FAERS Safety Report 14969054 (Version 1)
Quarter: 2018Q2

REPORT INFORMATION
  Report Type: Spontaneous
  Country: US (occurrence: US)
  Receive Date: 20180604
  Receipt Date: 20180604
  Transmission Date: 20180711
  Serious: No
  Sender: FDA-Public Use
  Company Number: US-SA-2018SA144254

PATIENT
  Age: 59 Year
  Sex: Female

DRUGS (1)
  1. DUPIXENT [Suspect]
     Active Substance: DUPILUMAB
     Indication: ECZEMA
     Dosage: 1 DF, 1X
     Dates: start: 20180517, end: 20180517

REACTIONS (3)
  - Erythema [Recovering/Resolving]
  - Rash [Recovering/Resolving]
  - Rash papular [Recovered/Resolved]

NARRATIVE: CASE EVENT DATE: 20180518
